FAERS Safety Report 15501313 (Version 2)
Quarter: 2018Q4

REPORT INFORMATION
  Report Type: Spontaneous
  Country: MX (occurrence: MX)
  Receive Date: 20181015
  Receipt Date: 20181106
  Transmission Date: 20190205
  Serious: Yes (Other)
  Sender: FDA-Public Use
  Company Number: MX-LEO PHARMA-313999

PATIENT
  Age: 66 Year
  Sex: Male

DRUGS (2)
  1. DAIVONEX OINTMENT [Suspect]
     Active Substance: CALCIPOTRIENE
     Indication: PSORIASIS
     Dosage: 50MG/100MG; MONDAY TO FRIDAY EVERY 12 HRS
  2. DAIVOBET [Suspect]
     Active Substance: BETAMETHASONE DIPROPIONATE\CALCIPOTRIENE
     Indication: PSORIASIS
     Dosage: 5MG/100MG; SATURDAY AND SUNDAY ONCE A DAY

REACTIONS (5)
  - Rosacea [Unknown]
  - Inappropriate schedule of product administration [Unknown]
  - Creatinine renal clearance decreased [Unknown]
  - Psoriasis [Unknown]
  - Renal failure [Unknown]
